FAERS Safety Report 5536133-6 (Version None)
Quarter: 2007Q4

REPORT INFORMATION
  Report Type: 
  Country: None (occurrence: None)
  Receive Date: 20071206
  Receipt Date: 20071128
  Transmission Date: 20080405
  Serious: Yes (Other)
  Sender: FDA-Public Use
  Company Number: FR-PFIZER INC-2007100053

PATIENT
  Age: 59 Year
  Sex: Female

DRUGS (1)
  1. TAHOR [Suspect]

REACTIONS (5)
  - ALOPECIA [None]
  - ECZEMA [None]
  - EYELID DISORDER [None]
  - MUSCLE RUPTURE [None]
  - MYALGIA [None]
